FAERS Safety Report 9215503 (Version 1)
Quarter: 2013Q2

REPORT INFORMATION
  Report Type: Spontaneous
  Country: FR (occurrence: FR)
  Receive Date: 20130406
  Receipt Date: 20130406
  Transmission Date: 20140414
  Serious: Yes (Hospitalization)
  Sender: FDA-Public Use
  Company Number: FR-B.I. PHARMACEUTICALS,INC./RIDGEFIELD-2013-FF-01034FF

PATIENT
  Age: 91 Year
  Sex: Female

DRUGS (5)
  1. PRADAXA [Suspect]
     Indication: ATRIAL FIBRILLATION
     Dosage: 220 MG
     Route: 048
  2. APROVEL [Concomitant]
     Indication: HYPERTENSION
  3. KARDEGIC [Concomitant]
  4. ANTIBIOTICS [Concomitant]
  5. DISCOTRINE [Concomitant]
     Route: 062

REACTIONS (1)
  - Hip arthroplasty [Unknown]
